FAERS Safety Report 4328860-3 (Version None)
Quarter: 2004Q1

REPORT INFORMATION
  Report Type: 
  Country: None (occurrence: None)
  Receive Date: 20040329
  Receipt Date: 20040120
  Transmission Date: 20041129
  Serious: No
  Sender: FDA-Public Use
  Company Number: 04P-163-0247639-00

PATIENT
  Age: 57 Year
  Sex: Female
  Weight: 56.6996 kg

DRUGS (15)
  1. HUMIRA [Suspect]
     Indication: RHEUMATOID ARTHRITIS
     Dosage: 40 MG, 1 IN 2 WK, SUBCUTANEOUS
     Route: 058
     Dates: start: 20040119
  2. ESTROGENS CONJUGATED [Concomitant]
  3. ESTRADIOL [Concomitant]
  4. PREDNISONE [Concomitant]
  5. METHIMAZOLE [Concomitant]
  6. BELAFEN [Concomitant]
  7. CALCIUM MAGNESIUM ZINC [Concomitant]
  8. POTASSIUM [Concomitant]
  9. MULTIVITAMIN [Concomitant]
  10. CALCIUM MAGNESIUM ZINC [Concomitant]
  11. POTASSIUM [Concomitant]
  12. MULTIVITAMIN [Concomitant]
  13. RETINOL [Concomitant]
  14. ASCORBIC ACID [Concomitant]
  15. TOCOPHEROL CONCENTRATE CAP [Concomitant]

REACTIONS (2)
  - INJECTION SITE PAIN [None]
  - INJECTION SITE STINGING [None]
